FAERS Safety Report 24995074 (Version 1)
Quarter: 2025Q1

REPORT INFORMATION
  Report Type: Spontaneous
  Country: US (occurrence: US)
  Receive Date: 20250221
  Receipt Date: 20250221
  Transmission Date: 20250408
  Serious: Yes (Other)
  Sender: BRISTOL-MYERS SQUIBB COMPANY
  Company Number: US-BRISTOL-MYERS SQUIBB COMPANY-2025-023117

PATIENT
  Age: 78 Year
  Sex: Male

DRUGS (3)
  1. POMALYST [Suspect]
     Active Substance: POMALIDOMIDE
     Indication: Plasma cell myeloma
     Route: 048
     Dates: start: 20241018
  2. POMALYST [Suspect]
     Active Substance: POMALIDOMIDE
     Route: 048
     Dates: start: 20241126
  3. POMALYST [Suspect]
     Active Substance: POMALIDOMIDE
     Dosage: 1 MG EVERY OTHER DAY FOR 14 DAYS
     Route: 048
     Dates: start: 202501

REACTIONS (2)
  - Neutropenia [Unknown]
  - Off label use [Unknown]
